FAERS Safety Report 5023400-8 (Version None)
Quarter: 2006Q2

REPORT INFORMATION
  Report Type: 
  Country: None (occurrence: None)
  Receive Date: 20060606
  Receipt Date: 20060524
  Transmission Date: 20061013
  Serious: Yes (Disabling)
  Sender: FDA-Public Use
  Company Number: 2006RL000184

PATIENT
  Age: 64 Year
  Sex: Male

DRUGS (2)
  1. OMACOR [Suspect]
     Indication: DRUG USE FOR UNKNOWN INDICATION
     Dosage: 1 DF, QD; PO
     Route: 048
     Dates: start: 20040101
  2. ASPIRIN [Suspect]
     Indication: ANGIOPATHY
     Dosage: 100 MG; QD; PO
     Route: 048
     Dates: start: 20040101

REACTIONS (3)
  - EXTRADURAL HAEMATOMA [None]
  - HAEMORRHAGE [None]
  - INTRACRANIAL PRESSURE INCREASED [None]
